FAERS Safety Report 8834805 (Version 1)
Quarter: 2012Q4

REPORT INFORMATION
  Report Type: 
  Country: VE (occurrence: VE)
  Receive Date: 20121010
  Receipt Date: 20121010
  Transmission Date: 20130627
  Serious: Yes (Death, Hospitalization, Other)
  Sender: FDA-Public Use
  Company Number: VE-GLAXOSMITHKLINE-A0996731A

PATIENT
  Age: 8 Year
  Sex: Male
  Weight: 20 kg

DRUGS (3)
  1. ARRANON [Suspect]
     Indication: T-CELL TYPE ACUTE LEUKAEMIA
     Dosage: 600MG Per day
     Route: 042
     Dates: start: 20120917, end: 20120921
  2. CYCLOPHOSPHAMIDE [Concomitant]
  3. ETOPOSIDE [Concomitant]

REACTIONS (2)
  - Respiratory failure [Fatal]
  - Lung infection [Fatal]
